FAERS Safety Report 24714231 (Version 1)
Quarter: 2024Q4

REPORT INFORMATION
  Report Type: Spontaneous
  Country: US (occurrence: None)
  Receive Date: 20241206
  Receipt Date: 20241206
  Transmission Date: 20250115
  Serious: Yes (Disabling, Other)
  Sender: Public
  Company Number: None

PATIENT
  Age: 43 Year
  Sex: Female
  Weight: 133.81 kg

DRUGS (1)
  1. WEGOVY [Suspect]
     Active Substance: SEMAGLUTIDE

REACTIONS (5)
  - Abdominal discomfort [None]
  - Bowel movement irregularity [None]
  - Illness [None]
  - Crying [None]
  - Abdominal pain [None]

NARRATIVE: CASE EVENT DATE: 20241113
